FAERS Safety Report 10775057 (Version 1)
Quarter: 2015Q1

REPORT INFORMATION
  Report Type: Spontaneous
  Country: MX (occurrence: MX)
  Receive Date: 20150209
  Receipt Date: 20150209
  Transmission Date: 20150721
  Serious: Yes (Disabling, Other)
  Sender: FDA-Public Use
  Company Number: MX-JNJFOC-20150113509

PATIENT
  Age: 72 Year
  Sex: Female
  Weight: 62 kg

DRUGS (9)
  1. XARELTO [Suspect]
     Active Substance: RIVAROXABAN
     Indication: ATRIAL FIBRILLATION
     Route: 048
     Dates: start: 20141121, end: 20141124
  2. OMEPRAZOLE. [Concomitant]
     Active Substance: OMEPRAZOLE
     Route: 065
  3. XARELTO [Suspect]
     Active Substance: RIVAROXABAN
     Indication: CEREBROVASCULAR ACCIDENT PROPHYLAXIS
     Route: 048
     Dates: start: 20141121, end: 20141124
  4. METOPROLOL [Concomitant]
     Active Substance: METOPROLOL
     Route: 065
  5. TELMISARTAN. [Concomitant]
     Active Substance: TELMISARTAN
     Route: 065
  6. MICARDIS [Concomitant]
     Active Substance: TELMISARTAN
     Route: 065
  7. NORFENON [Concomitant]
     Route: 065
  8. TIMOPTOL [Concomitant]
     Active Substance: TIMOLOL
     Route: 065
  9. SPIRONOLACTONE. [Concomitant]
     Active Substance: SPIRONOLACTONE
     Route: 065

REACTIONS (5)
  - Rash [Recovered/Resolved]
  - Angioedema [Recovering/Resolving]
  - Hypotension [Recovered/Resolved]
  - Face oedema [Recovered/Resolved]
  - Oedema peripheral [Recovered/Resolved]

NARRATIVE: CASE EVENT DATE: 20141122
